FAERS Safety Report 4796528-5 (Version None)
Quarter: 2005Q4

REPORT INFORMATION
  Report Type: 
  Country: None (occurrence: None)
  Receive Date: 20051011
  Receipt Date: 20050603
  Transmission Date: 20060501
  Serious: Yes (Hospitalization)
  Sender: FDA-Public Use
  Company Number: 2005-BP-09247BP

PATIENT
  Sex: Female

DRUGS (3)
  1. CATAPRES [Suspect]
     Indication: HYPERTENSION
     Dosage: 0.2 MG (5 MG), TO
     Route: 061
     Dates: start: 20040101
  2. OXYCODONE HCL [Concomitant]
  3. PAROXETINE HCL [Concomitant]

REACTIONS (1)
  - BLOOD PRESSURE INCREASED [None]
